FAERS Safety Report 11595243 (Version 1)
Quarter: 2015Q4

REPORT INFORMATION
  Report Type: Spontaneous
  Country: US (occurrence: US)
  Receive Date: 20151006
  Receipt Date: 20151006
  Transmission Date: 20160304
  Serious: No
  Sender: FDA-Public Use
  Company Number: US-ASTRAZENECA-2015SE92165

PATIENT
  Age: 76 Year
  Sex: Female
  Weight: 66.1 kg

DRUGS (9)
  1. IBRANCE [Suspect]
     Active Substance: PALBOCICLIB
     Dosage: NON AZ PRODUCT
     Route: 048
  2. HEPARIN [Suspect]
     Active Substance: HEPARIN SODIUM
     Dosage: NON AZ PRODUCT
     Route: 065
  3. AMOXICILLIN. [Concomitant]
     Active Substance: AMOXICILLIN
     Route: 048
     Dates: end: 20141110
  4. AFINITOR [Concomitant]
     Active Substance: EVEROLIMUS
     Route: 048
     Dates: end: 20140915
  5. AROMASIN [Suspect]
     Active Substance: EXEMESTANE
     Dosage: NON AZ PRODUCT
     Route: 065
  6. ARIMIDEX [Suspect]
     Active Substance: ANASTROZOLE
     Route: 048
     Dates: start: 20131119
  7. PHENERGAN [Concomitant]
     Active Substance: PROMETHAZINE HYDROCHLORIDE
     Dosage: 12.5 MG,IV DAILY FOR 1 DAY PRN
     Dates: start: 20110413, end: 20130626
  8. RANITIDINE [Concomitant]
     Active Substance: RANITIDINE\RANITIDINE HYDROCHLORIDE
     Dosage: 50 MG,INJECTION DAILY FOR 1 DAY
     Route: 065
     Dates: start: 20110629, end: 20110629
  9. AMLODIPINE [Concomitant]
     Active Substance: AMLODIPINE BESYLATE
     Route: 048
     Dates: end: 20141110

REACTIONS (10)
  - Herpes zoster [Unknown]
  - Cellulitis [Unknown]
  - Diarrhoea [Unknown]
  - Anaemia [Unknown]
  - Dermatophytosis [Unknown]
  - Dysphagia [Unknown]
  - Adverse event [Unknown]
  - Oedema [Unknown]
  - Abscess limb [Unknown]
  - Erythema [Unknown]

NARRATIVE: CASE EVENT DATE: 201401
